FAERS Safety Report 7013787-9 (Version None)
Quarter: 2010Q3

REPORT INFORMATION
  Report Type: 
  Country: None (occurrence: None)
  Receive Date: 20100924
  Receipt Date: 20100914
  Transmission Date: 20110219
  Serious: Yes (Hospitalization, Other)
  Sender: FDA-Public Use
  Company Number: AU-WYE-G06669510

PATIENT
  Sex: Female

DRUGS (2)
  1. EFFEXOR XR [Suspect]
     Dosage: EITHER 75 OR 150MG
  2. MIRTAZAPINE [Interacting]
     Dosage: TWO 1/2 DOSES ONLY

REACTIONS (2)
  - DRUG INTERACTION [None]
  - NONSPECIFIC REACTION [None]
